FAERS Safety Report 10015783 (Version 2)
Quarter: 2014Q2

REPORT INFORMATION
  Report Type: Spontaneous
  Country: US (occurrence: US)
  Receive Date: 20140317
  Receipt Date: 20140618
  Transmission Date: 20141212
  Serious: Yes (Hospitalization, Other)
  Sender: FDA-Public Use
  Company Number: US-BAYER-2014-040357

PATIENT
  Age: 28 Year
  Sex: Female
  Weight: 72.56 kg

DRUGS (7)
  1. MIRENA [Suspect]
     Indication: CONTRACEPTION
     Dosage: UNK
     Dates: start: 20100811, end: 20110310
  2. CARBAMAZEPINE [Concomitant]
  3. VALTREX [Concomitant]
  4. TETRACYCLINE [Concomitant]
  5. XANAX [Concomitant]
  6. RISPERDAL [Concomitant]
  7. WELLBUTRIN [Concomitant]

REACTIONS (9)
  - Uterine perforation [None]
  - Genital haemorrhage [None]
  - Scar [None]
  - Pain [None]
  - Injury [None]
  - Medical device discomfort [None]
  - Emotional distress [None]
  - Procedural pain [None]
  - Device issue [None]
